FAERS Safety Report 10977659 (Version 2)
Quarter: 2015Q2

REPORT INFORMATION
  Report Type: Report from Study
  Country: US (occurrence: None)
  Receive Date: 20150330
  Receipt Date: 20150526
  Transmission Date: 20150821
  Serious: Yes (Hospitalization)
  Sender: FDA-Public Use
  Company Number: US-2015VAL000226

PATIENT
  Age: 66 Year
  Sex: Male
  Weight: 120.2 kg

DRUGS (3)
  1. METOPROLOL TARTRATE (METOPROLOL TARTRATE) UNKNOWN [Suspect]
     Active Substance: METOPROLOL TARTRATE
     Indication: CARDIAC FAILURE CHRONIC
  2. CLCZ696D [Suspect]
     Active Substance: SACUBITRIL
     Indication: CARDIAC FAILURE
     Dosage: CODE NOT BROKEN
     Route: 048
     Dates: start: 20141222, end: 20150304
  3. ATENOLOL (ATENOLOL) [Suspect]
     Active Substance: ATENOLOL
     Indication: CARDIAC FAILURE CONGESTIVE

REACTIONS (2)
  - Syncope [None]
  - Chest pain [None]

NARRATIVE: CASE EVENT DATE: 20150311
